FAERS Safety Report 9420628 (Version 1)
Quarter: 2013Q3

REPORT INFORMATION
  Report Type: Spontaneous
  Country: US (occurrence: US)
  Receive Date: 20130725
  Receipt Date: 20130725
  Transmission Date: 20140515
  Serious: No
  Sender: FDA-Public Use
  Company Number: US-ABBOTT-13P-163-1102981-00

PATIENT
  Age: 68 Year
  Sex: Female
  Weight: 52.21 kg

DRUGS (4)
  1. SYNTHROID [Suspect]
     Indication: HYPOTHYROIDISM
     Dosage: DAILY
     Dates: start: 20130518, end: 20130518
  2. LEVOTHYROXINE SODIUM [Suspect]
     Indication: HYPOTHYROIDISM
     Dates: start: 201305, end: 201305
  3. UNSPECIFIED MEDICATION FOR HYPOTHYROIDISM [Suspect]
     Indication: HYPOTHYROIDISM
  4. NEXIUM [Concomitant]
     Indication: GASTROOESOPHAGEAL REFLUX DISEASE
     Dosage: 40 MG, DAILY

REACTIONS (4)
  - Chest discomfort [Recovered/Resolved]
  - Choking sensation [Recovered/Resolved]
  - Salivary hypersecretion [Recovered/Resolved]
  - Hypersensitivity [Unknown]
